FAERS Safety Report 7743956-1 (Version None)
Quarter: 2011Q3

REPORT INFORMATION
  Report Type: 
  Country: None (occurrence: None)
  Receive Date: 20110912
  Receipt Date: 20110907
  Transmission Date: 20111222
  Serious: Yes (Other)
  Sender: FDA-Public Use
  Company Number: FR-GLAXOSMITHKLINE-B0745760A

PATIENT
  Age: 18 Year
  Sex: Female

DRUGS (3)
  1. ZOLPIDEM [Concomitant]
     Route: 065
  2. ALPRAZOLAM [Concomitant]
     Route: 065
  3. PAROXETINE HCL [Suspect]
     Indication: OBSESSIVE-COMPULSIVE DISORDER
     Route: 048
     Dates: start: 20110101

REACTIONS (3)
  - EXTREMITY CONTRACTURE [None]
  - DYSKINESIA [None]
  - EXTRAPYRAMIDAL DISORDER [None]
